FAERS Safety Report 16631760 (Version 1)
Quarter: 2019Q3

REPORT INFORMATION
  Report Type: Spontaneous
  Country: US (occurrence: US)
  Receive Date: 20190725
  Receipt Date: 20190725
  Transmission Date: 20191004
  Serious: No
  Sender: FDA-Public Use
  Company Number: US-ABBVIE-19S-163-2697317-00

PATIENT
  Sex: Male

DRUGS (1)
  1. SYNTHROID [Suspect]
     Active Substance: LEVOTHYROXINE SODIUM
     Indication: HYPOTHYROIDISM
     Dosage: RECEIVING SYNTHROID FORM A CANADIAN PHARMACY FOR THE PAST 6 MONTHS.
     Route: 048

REACTIONS (2)
  - Blood thyroid stimulating hormone increased [Unknown]
  - Product formulation issue [Unknown]
